FAERS Safety Report 4845648-5 (Version None)
Quarter: 2005Q4

REPORT INFORMATION
  Report Type: 
  Country: None (occurrence: None)
  Receive Date: 20051205
  Receipt Date: 20040526
  Transmission Date: 20060501
  Serious: Yes (Hospitalization, Other)
  Sender: FDA-Public Use
  Company Number: JP-AVENTIS-200411832JP

PATIENT
  Age: 70 Year
  Sex: Male
  Weight: 55 kg

DRUGS (4)
  1. AMARYL [Suspect]
     Indication: DIABETES MELLITUS
     Route: 048
     Dates: start: 20020709, end: 20020723
  2. AMARYL [Suspect]
     Route: 048
     Dates: start: 20020724, end: 20021119
  3. AMARYL [Suspect]
     Route: 048
     Dates: start: 20021120, end: 20021219
  4. AMARYL [Suspect]
     Route: 048
     Dates: start: 20021220, end: 20040526

REACTIONS (4)
  - BLOOD GLUCOSE FLUCTUATION [None]
  - DRUG INEFFECTIVE [None]
  - MYELODYSPLASTIC SYNDROME [None]
  - PANCYTOPENIA [None]
